FAERS Safety Report 21867092 (Version 2)
Quarter: 2023Q1

REPORT INFORMATION
  Report Type: Spontaneous
  Country: BG (occurrence: BG)
  Receive Date: 20230116
  Receipt Date: 20230208
  Transmission Date: 20230418
  Serious: Yes (Hospitalization)
  Sender: FDA-Public Use
  Company Number: BG-002147023-NVSC2023BG008741

PATIENT
  Age: 43 Year
  Sex: Female

DRUGS (1)
  1. AMLODIPINE\VALSARTAN [Suspect]
     Active Substance: AMLODIPINE\VALSARTAN
     Indication: Hypertension
     Dosage: 1 DOSAGE FORM, QD (5MG/160MG, EVERY SECOND DAY SYSTEMICALLY)
     Route: 065

REACTIONS (1)
  - Melanocytic naevus [Unknown]
